FAERS Safety Report 5170313-7 (Version None)
Quarter: 2006Q4

REPORT INFORMATION
  Report Type: 
  Country: None (occurrence: None)
  Receive Date: 20061204
  Receipt Date: 20061120
  Transmission Date: 20070319
  Serious: Yes (Hospitalization)
  Sender: FDA-Public Use
  Company Number: 2006BM000174

PATIENT
  Age: 65 Year
  Sex: Female

DRUGS (5)
  1. ETODOLAC [Suspect]
     Indication: RHEUMATOID ARTHRITIS
     Dosage: 400 MG; QD
  2. PREDNISOLONE [Suspect]
     Indication: RHEUMATOID ARTHRITIS
     Dosage: 4 MG; QD
  3. PREDNISOLONE SODIUM PHOSPHATE [Suspect]
  4. METHOTREXATE [Concomitant]
  5. FAMOTIDINE [Concomitant]

REACTIONS (9)
  - BLOOD LACTATE DEHYDROGENASE INCREASED [None]
  - CHEST DISCOMFORT [None]
  - CHEST PAIN [None]
  - DYSPNOEA [None]
  - GASTRIC ULCER PERFORATION [None]
  - GASTROINTESTINAL FISTULA [None]
  - INFLAMMATION [None]
  - PLEURAL EFFUSION [None]
  - PNEUMOTHORAX [None]
